FAERS Safety Report 10112224 (Version 1)
Quarter: 2014Q2

REPORT INFORMATION
  Report Type: Spontaneous
  Country: CN (occurrence: CN)
  Receive Date: 20140425
  Receipt Date: 20140425
  Transmission Date: 20141212
  Serious: Yes (Hospitalization)
  Sender: FDA-Public Use
  Company Number: PHHY2014CN050096

PATIENT
  Age: 8 Day
  Sex: Male
  Weight: 3.6 kg

DRUGS (1)
  1. CLOZAPINE [Suspect]
     Dosage: 25 MG,

REACTIONS (12)
  - Toxicity to various agents [Recovering/Resolving]
  - Neonatal pneumonia [Recovering/Resolving]
  - Hyperbilirubinaemia neonatal [Recovering/Resolving]
  - Toxic encephalopathy [Recovering/Resolving]
  - Kernicterus [Recovering/Resolving]
  - Convulsion [Recovering/Resolving]
  - Pyrexia [Recovering/Resolving]
  - Jaundice [Recovering/Resolving]
  - Muscle tightness [Recovering/Resolving]
  - Irritability [Recovering/Resolving]
  - Screaming [Recovering/Resolving]
  - Musculoskeletal stiffness [Recovering/Resolving]
